FAERS Safety Report 7057135-7 (Version None)
Quarter: 2010Q4

REPORT INFORMATION
  Report Type: 
  Country: None (occurrence: None)
  Receive Date: 20101021
  Receipt Date: 20101021
  Transmission Date: 20110411
  Serious: Yes (Other)
  Sender: FDA-Public Use
  Company Number: None

PATIENT
  Age: 16 Year
  Sex: Female
  Weight: 58.9676 kg

DRUGS (4)
  1. TYLENOL-500 [Suspect]
     Indication: INFLUENZA LIKE ILLNESS
     Dosage: 1000MG EVERY 6 HOURS PO
     Route: 048
     Dates: start: 20100702, end: 20100704
  2. TYLENOL-500 [Suspect]
     Indication: OROPHARYNGEAL PAIN
     Dosage: 1000MG EVERY 6 HOURS PO
     Route: 048
     Dates: start: 20100702, end: 20100704
  3. TYLENOL-500 [Suspect]
     Indication: INFLUENZA LIKE ILLNESS
     Dosage: 1000MG EVERY 6 HOURS PO
     Route: 048
     Dates: start: 20101019, end: 20101019
  4. TYLENOL-500 [Suspect]
     Indication: OROPHARYNGEAL PAIN
     Dosage: 1000MG EVERY 6 HOURS PO
     Route: 048
     Dates: start: 20101019, end: 20101019

REACTIONS (1)
  - URTICARIA [None]
